FAERS Safety Report 23627906 (Version 1)
Quarter: 2024Q1

REPORT INFORMATION
  Report Type: Spontaneous
  Country: ES (occurrence: None)
  Receive Date: 20240313
  Receipt Date: 20240313
  Transmission Date: 20240410
  Serious: Yes (Hospitalization)
  Sender: FDA-Public Use
  Company Number: 2024A062208

PATIENT
  Age: 52 Year
  Sex: Female

DRUGS (5)
  1. OMEPRAZOLE [Suspect]
     Active Substance: OMEPRAZOLE
     Dosage: TREATMENT WOTH HIGH-DOSE OMEPRAZOLE EVERY 12 HOURS
     Route: 048
  2. MEROPENEM [Suspect]
     Active Substance: MEROPENEM
  3. CIPROFLOXACIN [Suspect]
     Active Substance: CIPROFLOXACIN
  4. AVIBACTAM SODIUM\CEFTAZIDIME [Suspect]
     Active Substance: AVIBACTAM SODIUM\CEFTAZIDIME
  5. VANCOMYCIN [Suspect]
     Active Substance: VANCOMYCIN

REACTIONS (2)
  - Multiple organ dysfunction syndrome [Recovering/Resolving]
  - Drug reaction with eosinophilia and systemic symptoms [Recovering/Resolving]
